FAERS Safety Report 9227829 (Version 2)
Quarter: 2013Q2

REPORT INFORMATION
  Report Type: Spontaneous
  Country: JP (occurrence: JP)
  Receive Date: 20130412
  Receipt Date: 20130523
  Transmission Date: 20140414
  Serious: Yes (Other)
  Sender: FDA-Public Use
  Company Number: JP-PFIZER INC-2013116251

PATIENT
  Sex: Female

DRUGS (2)
  1. JZOLOFT [Suspect]
     Dosage: 25 MG, 1X/DAY
     Dates: start: 201302, end: 2013
  2. JZOLOFT [Suspect]
     Dosage: 50 MG, 1X/DAY
     Dates: start: 201303, end: 2013

REACTIONS (2)
  - Aspiration [Unknown]
  - Muscle spasms [Unknown]
